FAERS Safety Report 7417403-3 (Version None)
Quarter: 2011Q2

REPORT INFORMATION
  Report Type: 
  Country: None (occurrence: None)
  Receive Date: 20110415
  Receipt Date: 20110408
  Transmission Date: 20111010
  Serious: Yes (Other)
  Sender: FDA-Public Use
  Company Number: IT-PFIZER INC-2010083871

PATIENT
  Age: 67 Year
  Sex: Female

DRUGS (5)
  1. AVASTIN [Suspect]
     Indication: METASTASES TO LIVER
     Dosage: 290 MG, CYCLIC
     Route: 042
     Dates: start: 20090918, end: 20091127
  2. FLUOROURACIL [Suspect]
     Dosage: 929 MG, CYCLIC
     Route: 042
     Dates: start: 20090918, end: 20091127
  3. CAMPTOSAR [Suspect]
     Indication: METASTASES TO LIVER
     Dosage: 275 MG, CYCLIC
     Route: 042
     Dates: start: 20090918, end: 20091127
  4. FLUOROURACIL [Suspect]
     Indication: METASTASES TO LIVER
     Dosage: 620 MG, CYCLIC
     Route: 042
     Dates: start: 20090918, end: 20091127
  5. LEDERFOLIN [Suspect]
     Indication: METASTASES TO LIVER
     Dosage: 150 MG, CYCLIC
     Route: 042
     Dates: start: 20090918, end: 20091127

REACTIONS (3)
  - PYREXIA [None]
  - DYSURIA [None]
  - DEHYDRATION [None]
